FAERS Safety Report 12083555 (Version 1)
Quarter: 2016Q1

REPORT INFORMATION
  Report Type: Spontaneous
  Country: US (occurrence: None)
  Receive Date: 20160216
  Receipt Date: 20160216
  Transmission Date: 20160526
  Serious: Yes (Hospitalization)
  Sender: FDA-Public Use
  Company Number: None

PATIENT
  Age: 59 Year
  Sex: Male
  Weight: 105.3 kg

DRUGS (4)
  1. ETOPOSIDE (VP-16) [Suspect]
     Active Substance: ETOPOSIDE
     Dosage: TOTAL DOSE ADMINISTERED - 1120 MG
     Dates: start: 20150429, end: 20160126
  2. METHOTREXATE [Suspect]
     Active Substance: METHOTREXATE
     Dosage: TOTAL DOSE ADMINISTERED - 12.5 MG
     Dates: start: 20150429, end: 20160122
  3. ONCASPAR [Suspect]
     Active Substance: PEGASPARGASE
     Dosage: TOTAL DOSE ADMINISTERED - 2250 IU
     Dates: start: 20150429, end: 20160126
  4. CYTARABINE. [Suspect]
     Active Substance: CYTARABINE
     Dosage: TOTAL DOSE ADMINISTERED - 850 MG
     Dates: start: 20150429, end: 20160126

REACTIONS (7)
  - Thrombocytopenia [None]
  - Neutropenia [None]
  - Pain in extremity [None]
  - Hypotension [None]
  - Mental status changes [None]
  - Dizziness [None]
  - Atelectasis [None]

NARRATIVE: CASE EVENT DATE: 20160203
